FAERS Safety Report 23933052 (Version 2)
Quarter: 2024Q3

REPORT INFORMATION
  Report Type: Spontaneous
  Country: US (occurrence: US)
  Receive Date: 20240603
  Receipt Date: 20240729
  Transmission Date: 20241017
  Serious: No
  Sender: BRISTOL MYERS SQUIBB
  Company Number: US-BRISTOL-MYERS SQUIBB COMPANY-2024-088823

PATIENT
  Age: 88 Year
  Sex: Female
  Weight: 43.54 kg

DRUGS (1)
  1. REVLIMID [Suspect]
     Active Substance: LENALIDOMIDE
     Indication: Hyperparathyroidism secondary
     Route: 048

REACTIONS (3)
  - Blood calcium decreased [Recovering/Resolving]
  - Off label use [Unknown]
  - Solar lentigo [Not Recovered/Not Resolved]
